FAERS Safety Report 4536641-0 (Version None)
Quarter: 2004Q4

REPORT INFORMATION
  Report Type: 
  Country: None (occurrence: None)
  Receive Date: 20041222
  Receipt Date: 20041222
  Transmission Date: 20050328
  Serious: Yes (Other)
  Sender: FDA-Public Use
  Company Number: None

PATIENT
  Age: 57 Year
  Sex: Female
  Weight: 77.1115 kg

DRUGS (5)
  1. LEVAQUIN [Suspect]
     Indication: ABDOMINAL PAIN LOWER
     Dosage: 500MG  PER DAY ORAL
     Route: 048
     Dates: start: 20041209, end: 20041215
  2. PARNATE [Concomitant]
  3. TRAZEDONE [Concomitant]
  4. SULINDAC [Concomitant]
  5. BENADRYL [Concomitant]

REACTIONS (12)
  - ANXIETY [None]
  - ARTHRALGIA [None]
  - ASTHENIA [None]
  - HEADACHE [None]
  - HEART RATE INCREASED [None]
  - HEART RATE IRREGULAR [None]
  - MUSCLE CRAMP [None]
  - NECK PAIN [None]
  - PAIN [None]
  - TENDON DISORDER [None]
  - TREMOR [None]
  - VENTRICULAR EXTRASYSTOLES [None]
